FAERS Safety Report 11170299 (Version 2)
Quarter: 2015Q2

REPORT INFORMATION
  Report Type: Spontaneous
  Country: US (occurrence: US)
  Receive Date: 20150608
  Receipt Date: 20150608
  Transmission Date: 20150821
  Serious: No
  Sender: FDA-Public Use
  Company Number: US-BRISTOL-MYERS SQUIBB COMPANY-BMS-2015-036948

PATIENT
  Age: 61 Year
  Sex: Male

DRUGS (1)
  1. COUMADIN [Suspect]
     Active Substance: WARFARIN SODIUM
     Indication: DEEP VEIN THROMBOSIS
     Dosage: 3 MG, UNK
     Route: 048

REACTIONS (3)
  - Dizziness [Unknown]
  - Heart rate decreased [Unknown]
  - International normalised ratio fluctuation [Unknown]
